FAERS Safety Report 9057545 (Version 2)
Quarter: 2013Q1

REPORT INFORMATION
  Report Type: Spontaneous
  Country: FR (occurrence: FR)
  Receive Date: 20130204
  Receipt Date: 20130226
  Transmission Date: 20140127
  Serious: Yes (Hospitalization)
  Sender: FDA-Public Use
  Company Number: FR-PFIZER INC-2013036008

PATIENT
  Age: 34 Year
  Sex: Female

DRUGS (1)
  1. SALAZOPYRINE [Suspect]
     Indication: RHEUMATOID ARTHRITIS
     Dosage: UNK
     Route: 048
     Dates: start: 20120625, end: 20120709

REACTIONS (3)
  - Rash [Unknown]
  - Pyrexia [Unknown]
  - Diarrhoea [Unknown]
